FAERS Safety Report 19380611 (Version 1)
Quarter: 2021Q2

REPORT INFORMATION
  Report Type: Spontaneous
  Country: US (occurrence: US)
  Receive Date: 20210604
  Receipt Date: 20210604
  Transmission Date: 20210717
  Serious: Yes (Life-Threatening)
  Sender: FDA-Public Use
  Company Number: None

PATIENT
  Sex: Female

DRUGS (13)
  1. AMBRISENTAN 10M TAB [Suspect]
     Active Substance: AMBRISENTAN
     Indication: PULMONARY ARTERIAL HYPERTENSION
     Route: 048
     Dates: start: 20210130
  2. CALCIUM CHW [Concomitant]
  3. IBUPROFEN. [Concomitant]
     Active Substance: IBUPROFEN
  4. DULOXETINE. [Concomitant]
     Active Substance: DULOXETINE
  5. ELIQUIS [Concomitant]
     Active Substance: APIXABAN
  6. PROTONIX [Concomitant]
     Active Substance: PANTOPRAZOLE SODIUM
  7. LEVOTHYROXIN [Concomitant]
     Active Substance: LEVOTHYROXINE
  8. DOFETILIDE. [Concomitant]
     Active Substance: DOFETILIDE
  9. CRAN CON [Concomitant]
  10. DILTIAZEM ER [Concomitant]
     Active Substance: DILTIAZEM
  11. EMGALITY [Concomitant]
     Active Substance: GALCANEZUMAB-GNLM
  12. UBRELVY [Concomitant]
     Active Substance: UBROGEPANT
  13. PROAIR HFA [Concomitant]
     Active Substance: ALBUTEROL SULFATE

REACTIONS (1)
  - Sepsis [None]
